FAERS Safety Report 8860508 (Version 1)
Quarter: 2012Q4

REPORT INFORMATION
  Report Type: 
  Country: IN (occurrence: IN)
  Receive Date: 20121025
  Receipt Date: 20121025
  Transmission Date: 20130627
  Serious: Yes (Hospitalization)
  Sender: FDA-Public Use
  Company Number: PHHY2012IN072273

PATIENT
  Sex: Female

DRUGS (1)
  1. GLIVEC [Suspect]
     Indication: CHRONIC MYELOID LEUKAEMIA
     Dosage: 400 mg, UNK
     Route: 048

REACTIONS (4)
  - Malaria [Unknown]
  - Pyrexia [Unknown]
  - Platelet count decreased [Unknown]
  - Malaise [Recovered/Resolved]
